FAERS Safety Report 13874128 (Version 1)
Quarter: 2017Q3

REPORT INFORMATION
  Report Type: Spontaneous
  Country: JP (occurrence: JP)
  Receive Date: 20170816
  Receipt Date: 20170816
  Transmission Date: 20171127
  Serious: Yes (Other)
  Sender: FDA-Public Use
  Company Number: JP-PFIZER INC-2017354926

PATIENT

DRUGS (2)
  1. MAGNESIUM [Concomitant]
     Active Substance: MAGNESIUM
     Dosage: UNK
     Route: 048
  2. LYRICA [Suspect]
     Active Substance: PREGABALIN
     Dosage: 300 MG, UNK
     Route: 048

REACTIONS (1)
  - Bradycardia [Unknown]
